FAERS Safety Report 7071258-8 (Version None)
Quarter: 2010Q4

REPORT INFORMATION
  Report Type: 
  Country: None (occurrence: None)
  Receive Date: 20101029
  Receipt Date: 20101020
  Transmission Date: 20110411
  Serious: Yes (Death, Other)
  Sender: FDA-Public Use
  Company Number: GB-ACTELION-A-US2010-35834

PATIENT
  Age: 23 Year
  Sex: Female
  Weight: 50 kg

DRUGS (5)
  1. TRACLEER [Suspect]
     Indication: PULMONARY ARTERIAL HYPERTENSION
     Route: 048
  2. VENTAVIS [Suspect]
     Indication: PULMONARY ARTERIAL HYPERTENSION
     Dosage: 5 UG, 7 X DAY
     Route: 055
  3. ILOMEDIN [Concomitant]
  4. SILDENAFIL CITRATE [Concomitant]
  5. HEPARIN [Concomitant]

REACTIONS (7)
  - CAESAREAN SECTION [None]
  - DEATH [None]
  - DISEASE PROGRESSION [None]
  - PREGNANCY [None]
  - PREMATURE BABY [None]
  - PULMONARY HYPERTENSION [None]
  - SYNCOPE [None]
